FAERS Safety Report 8269425-0 (Version None)
Quarter: 2012Q2

REPORT INFORMATION
  Report Type: 
  Country: None (occurrence: None)
  Receive Date: 20120409
  Receipt Date: 20120229
  Transmission Date: 20120825
  Serious: No
  Sender: FDA-Public Use
  Company Number: US-ASTRAZENECA-2012SE14272

PATIENT
  Sex: Female

DRUGS (6)
  1. ACE INHIBITOR [Concomitant]
  2. ASPIRIN [Concomitant]
  3. BRILINTA [Suspect]
     Route: 048
     Dates: start: 20111201
  4. BETA BLOCKER [Concomitant]
  5. CRESTOR [Suspect]
     Route: 048
  6. EFFIENT [Concomitant]

REACTIONS (4)
  - CREATININE RENAL CLEARANCE INCREASED [None]
  - CONTUSION [None]
  - MALAISE [None]
  - DYSPNOEA [None]
